FAERS Safety Report 7831400-5 (Version None)
Quarter: 2011Q4

REPORT INFORMATION
  Report Type: 
  Country: None (occurrence: None)
  Receive Date: 20111021
  Receipt Date: 20110922
  Transmission Date: 20120403
  Serious: Yes (Death, Hospitalization, Other)
  Sender: FDA-Public Use
  Company Number: PA-ROXANE LABORATORIES, INC.-2011-DE-05098GD

PATIENT
  Age: 65 Year
  Sex: Male

DRUGS (6)
  1. ANTIPARASITIC AGENT [Suspect]
  2. METHYLPREDNISOLONE [Suspect]
     Indication: ERYTHEMA
     Dosage: 40 MG
     Route: 042
  3. PREDNISONE [Suspect]
     Indication: ARTHRALGIA
     Dosage: 5 MG
     Route: 048
  4. PREDNISONE [Suspect]
     Dosage: 1.25 MG
     Route: 048
  5. METHYLPREDNISOLONE [Suspect]
     Indication: PRURITUS
  6. PREDNISONE [Suspect]
     Dosage: 2.5 MG
     Route: 048

REACTIONS (6)
  - SYSTEMIC INFLAMMATORY RESPONSE SYNDROME [None]
  - TOXIC EPIDERMAL NECROLYSIS [None]
  - PYREXIA [None]
  - TACHYCARDIA [None]
  - HYPERTENSION [None]
  - BACTERIAL SEPSIS [None]
